FAERS Safety Report 7912025-X (Version None)
Quarter: 2011Q4

REPORT INFORMATION
  Report Type: 
  Country: None (occurrence: None)
  Receive Date: 20111114
  Receipt Date: 20111109
  Transmission Date: 20120403
  Serious: Yes (Hospitalization, Disabling)
  Sender: FDA-Public Use
  Company Number: US-B.I. PHARMACEUTICALS,INC./RIDGEFIELD-2011-BP-25869BP

PATIENT
  Sex: Female

DRUGS (8)
  1. PROZAC [Concomitant]
     Indication: DEPRESSION
     Dates: start: 20110601
  2. LASIX [Concomitant]
     Dates: start: 20110601
  3. LISINOPRIL [Concomitant]
     Indication: HYPERTENSION
     Dates: start: 20110601
  4. COREG [Concomitant]
     Dates: start: 20110601
  5. AMIODARONE HCL [Concomitant]
     Indication: HYPERTENSION
     Dates: start: 20110601
  6. POTASSIUM [Concomitant]
     Indication: SUPPLEMENTATION THERAPY
     Dates: start: 20110601
  7. PRADAXA [Suspect]
     Indication: ATRIAL FIBRILLATION
     Dosage: 300 MG
     Route: 048
     Dates: start: 20110301, end: 20110530
  8. PRADAXA [Suspect]
     Dosage: 300 MG
     Route: 048
     Dates: start: 20110604

REACTIONS (2)
  - CEREBROVASCULAR ACCIDENT [None]
  - CARDIAC ABLATION [None]
